FAERS Safety Report 12916477 (Version 1)
Quarter: 2016Q4

REPORT INFORMATION
  Report Type: Other
  Country: US (occurrence: US)
  Receive Date: 20161107
  Receipt Date: 20161107
  Transmission Date: 20170207
  Serious: Yes (Hospitalization, Other)
  Sender: FDA-Public Use
  Company Number: US-SHIRE-US201616182

PATIENT
  Age: 72 Year
  Sex: Female

DRUGS (2)
  1. LIALDA [Suspect]
     Active Substance: MESALAMINE
     Indication: PRODUCT USED FOR UNKNOWN INDICATION
     Dosage: UNK, UNKNOWNI
     Route: 048
  2. PREDNISONE. [Suspect]
     Active Substance: PREDNISONE
     Indication: COLITIS
     Dosage: UNK, UNKNOWN
     Route: 065
     Dates: end: 201607

REACTIONS (9)
  - Fall [Recovered/Resolved]
  - Blood pressure increased [Unknown]
  - Hypotension [Unknown]
  - Colitis [Unknown]
  - Blood sodium decreased [Unknown]
  - Asthenia [Recovered/Resolved]
  - Upper limb fracture [Unknown]
  - Dizziness [Unknown]
  - Coronary artery occlusion [Recovered/Resolved]

NARRATIVE: CASE EVENT DATE: 20160825
